FAERS Safety Report 7928974-2 (Version None)
Quarter: 2011Q4

REPORT INFORMATION
  Report Type: 
  Country: None (occurrence: None)
  Receive Date: 20111118
  Receipt Date: 20111104
  Transmission Date: 20120403
  Serious: Yes (Other)
  Sender: FDA-Public Use
  Company Number: RU-WATSON-2011-19159

PATIENT
  Age: 60 Year
  Sex: Male

DRUGS (1)
  1. CABERGOLINE [Suspect]
     Indication: PROLACTINOMA
     Dosage: UNK

REACTIONS (3)
  - VISUAL FIELD TESTS ABNORMAL [None]
  - EMPTY SELLA SYNDROME [None]
  - VISUAL ACUITY REDUCED [None]
